FAERS Safety Report 7162677-X (Version None)
Quarter: 2010Q4

REPORT INFORMATION
  Report Type: 
  Country: None (occurrence: None)
  Receive Date: 20101215
  Receipt Date: 20091207
  Transmission Date: 20110411
  Serious: Yes (Other)
  Sender: FDA-Public Use
  Company Number: US-PFIZER INC-2009307782

PATIENT
  Sex: Female
  Weight: 58.957 kg

DRUGS (1)
  1. LYRICA [Suspect]
     Indication: FIBROMYALGIA
     Dosage: 75 MG, 2X/DAY

REACTIONS (3)
  - GALLBLADDER DISORDER [None]
  - HEADACHE [None]
  - TINNITUS [None]
